FAERS Safety Report 4634035-0 (Version None)
Quarter: 2005Q2

REPORT INFORMATION
  Report Type: 
  Country: None (occurrence: None)
  Receive Date: 20050413
  Receipt Date: 20050401
  Transmission Date: 20051028
  Serious: Yes (Other)
  Sender: FDA-Public Use
  Company Number: DE-JNJFOC-20050203931

PATIENT
  Sex: Male
  Weight: 65 kg

DRUGS (3)
  1. REMINYL [Suspect]
     Indication: DEMENTIA
     Route: 049
  2. ASPIRIN [Concomitant]
     Route: 049
  3. OMEPRAZOLE [Concomitant]
     Indication: REFLUX OESOPHAGITIS
     Route: 049

REACTIONS (1)
  - PEMPHIGOID [None]
